FAERS Safety Report 12603253 (Version 8)
Quarter: 2018Q3

REPORT INFORMATION
  Report Type: Report from Study
  Country: US (occurrence: US)
  Receive Date: 20160728
  Receipt Date: 20180830
  Transmission Date: 20181010
  Serious: Yes (Hospitalization, Other)
  Sender: FDA-Public Use
  Company Number: US-ACTELION-A-US2016-139797

PATIENT
  Age: 83 Year
  Sex: Female

DRUGS (4)
  1. OPSUMIT [Suspect]
     Active Substance: MACITENTAN
     Indication: PULMONARY ARTERIAL HYPERTENSION
     Dosage: 10 MG, QD
     Route: 048
     Dates: start: 20150427
  2. OPSUMIT [Suspect]
     Active Substance: MACITENTAN
     Dosage: 10 MG, QD
     Route: 048
  3. NIFEDIPINE XL [Concomitant]
     Active Substance: NIFEDIPINE
  4. WARFARIN [Concomitant]
     Active Substance: WARFARIN

REACTIONS (16)
  - Arthritis [Unknown]
  - Cardiac failure [Unknown]
  - Cystitis [Unknown]
  - Feeling cold [Unknown]
  - Medical device implantation [Unknown]
  - Neoplasm malignant [Unknown]
  - Seizure [Unknown]
  - Kidney infection [Unknown]
  - Back disorder [Unknown]
  - Arthralgia [Unknown]
  - Malaise [Unknown]
  - Pain in extremity [Unknown]
  - Pain [Unknown]
  - Vein collapse [Unknown]
  - Hot flush [Unknown]
  - Back pain [Unknown]

NARRATIVE: CASE EVENT DATE: 201604
